FAERS Safety Report 12115136 (Version 1)
Quarter: 2016Q1

REPORT INFORMATION
  Report Type: Spontaneous
  Country: US (occurrence: US)
  Receive Date: 20160225
  Receipt Date: 20160225
  Transmission Date: 20160526
  Serious: No
  Sender: FDA-Public Use
  Company Number: US-LANTHEUS-LMI-2015-00653

PATIENT

DRUGS (1)
  1. DEFINITY [Suspect]
     Active Substance: PERFLUTREN
     Indication: ECHOCARDIOGRAM
     Dosage: UNKNOWN DOSE OF DEFINITY (ROUTE AND DILUTION DETAILS UNKNOWN)

REACTIONS (2)
  - Throat irritation [Unknown]
  - Throat tightness [Unknown]
